FAERS Safety Report 8195741-7 (Version None)
Quarter: 2012Q1

REPORT INFORMATION
  Report Type: 
  Country: None (occurrence: None)
  Receive Date: 20120308
  Receipt Date: 20120229
  Transmission Date: 20120608
  Serious: Yes (Hospitalization, Other)
  Sender: FDA-Public Use
  Company Number: TR-ABBOTT-12P-161-0910414-00

PATIENT
  Age: 30 Year
  Sex: Male

DRUGS (1)
  1. VALPROATE SODIUM [Suspect]
     Indication: CONVULSION

REACTIONS (3)
  - HEADACHE [None]
  - CEREBELLAR HAEMORRHAGE [None]
  - ATAXIA [None]
